FAERS Safety Report 24205424 (Version 2)
Quarter: 2024Q4

REPORT INFORMATION
  Report Type: Spontaneous
  Country: US (occurrence: US)
  Receive Date: 20240813
  Receipt Date: 20241212
  Transmission Date: 20250115
  Serious: Yes (Other)
  Sender: ALEXION PHARMACEUTICALS
  Company Number: 2024A178149

PATIENT

DRUGS (4)
  1. WAINUA [Suspect]
     Active Substance: EPLONTERSEN
  2. WAINUA [Suspect]
     Active Substance: EPLONTERSEN
     Route: 058
  3. WAINUA [Suspect]
     Active Substance: EPLONTERSEN
  4. WAINUA [Suspect]
     Active Substance: EPLONTERSEN
     Route: 058

REACTIONS (3)
  - Arthralgia [Not Recovered/Not Resolved]
  - Joint swelling [Not Recovered/Not Resolved]
  - Peripheral swelling [Not Recovered/Not Resolved]
